FAERS Safety Report 16152368 (Version 1)
Quarter: 2019Q2

REPORT INFORMATION
  Report Type: Spontaneous
  Country: US (occurrence: US)
  Receive Date: 20190403
  Receipt Date: 20190403
  Transmission Date: 20190711
  Serious: No
  Sender: FDA-Public Use
  Company Number: US-SA-2019SA089058

PATIENT
  Weight: 81 kg

DRUGS (4)
  1. VENLAFAXINE HYDROCHLORIDE. [Suspect]
     Active Substance: VENLAFAXINE HYDROCHLORIDE
  2. DEMEROL [Suspect]
     Active Substance: MEPERIDINE HYDROCHLORIDE
  3. PLAVIX [Suspect]
     Active Substance: CLOPIDOGREL BISULFATE
  4. GABAPENTIN. [Suspect]
     Active Substance: GABAPENTIN
     Dosage: 3 DF, TID

REACTIONS (3)
  - Nausea [Unknown]
  - Hypersensitivity [Unknown]
  - Rash [Unknown]
